FAERS Safety Report 5626309-1 (Version None)
Quarter: 2008Q1

REPORT INFORMATION
  Report Type: 
  Country: None (occurrence: None)
  Receive Date: 20080214
  Receipt Date: 20080206
  Transmission Date: 20080703
  Serious: Yes (Death, Hospitalization, Other)
  Sender: FDA-Public Use
  Company Number: JP-MERCK-0712USA02613

PATIENT
  Age: 95 Year
  Sex: Female
  Weight: 55 kg

DRUGS (9)
  1. HYZAAR [Suspect]
     Indication: HYPERTENSION
     Route: 048
     Dates: start: 20070330
  2. ALDACTONE [Suspect]
     Indication: HYPERTENSION
     Route: 048
     Dates: start: 20070330
  3. URALYT [Suspect]
     Indication: HYPERURICAEMIA
     Route: 048
     Dates: start: 20070913
  4. GLYSENNID [Concomitant]
     Indication: CONSTIPATION
     Route: 048
     Dates: start: 20060113
  5. ALESION [Concomitant]
     Indication: RHINITIS ALLERGIC
     Route: 048
     Dates: start: 20060113
  6. MAGNESIUM OXIDE [Concomitant]
     Indication: CONSTIPATION
     Route: 048
     Dates: start: 20060407
  7. NORVASC [Concomitant]
     Indication: HYPERTENSION
     Route: 048
     Dates: start: 20031114
  8. ASPIRIN [Concomitant]
     Indication: ARTERIOSCLEROSIS
     Route: 048
     Dates: start: 20031114
  9. LAFUTIDINE [Concomitant]
     Indication: GASTRIC ULCER
     Route: 048
     Dates: start: 20031114

REACTIONS (3)
  - ALTERED STATE OF CONSCIOUSNESS [None]
  - CARDIAC FAILURE [None]
  - HYPONATRAEMIA [None]
